FAERS Safety Report 8759388 (Version 3)
Quarter: 2012Q4

REPORT INFORMATION
  Report Type: 
  Country: US (occurrence: US)
  Receive Date: 20120829
  Receipt Date: 20120911
  Transmission Date: 20130627
  Serious: Yes (Death)
  Sender: FDA-Public Use
  Company Number: US-BAXTER-2012BAX015586

PATIENT
  Sex: Female
  Weight: 97.16 kg

DRUGS (1)
  1. 0.9% SODIUM CHLORIDE INJECTION [Suspect]
     Indication: PLASMAPHERESIS
     Route: 042
     Dates: start: 20120816, end: 20120816

REACTIONS (1)
  - Drug abuse [Fatal]
